FAERS Safety Report 5918617-1 (Version None)
Quarter: 2008Q4

REPORT INFORMATION
  Report Type: 
  Country: None (occurrence: None)
  Receive Date: 20081015
  Receipt Date: 20081003
  Transmission Date: 20090506
  Serious: Yes (Other)
  Sender: FDA-Public Use
  Company Number: US-JNJFOC-20081001608

PATIENT
  Sex: Female
  Weight: 58.97 kg

DRUGS (3)
  1. ORTHO TRI-CYCLEN [Suspect]
     Route: 048
  2. ORTHO TRI-CYCLEN [Suspect]
     Indication: CONTRACEPTION
     Route: 048
  3. ORTHO TRI-CYCLEN LO [Suspect]
     Indication: CONTRACEPTION
     Route: 048

REACTIONS (3)
  - INFLAMMATORY BOWEL DISEASE [None]
  - MENSTRUATION DELAYED [None]
  - METRORRHAGIA [None]
